FAERS Safety Report 10900488 (Version 1)
Quarter: 2015Q1

REPORT INFORMATION
  Report Type: Spontaneous
  Country: CN (occurrence: None)
  Receive Date: 20150303
  Receipt Date: 20150303
  Transmission Date: 20150721
  Serious: Yes (Death)
  Sender: FDA-Public Use
  Company Number: FK201501009

PATIENT
  Age: 64 Year
  Sex: Male

DRUGS (1)
  1. FLUDARABINE [Suspect]
     Active Substance: FLUDARABINE PHOSPHATE
     Indication: WALDENSTROM^S MACROGLOBULINAEMIA
     Dosage: 25 MG/M2, DAILY FOR 5 DAYS, 2 CYCLES

REACTIONS (2)
  - Pneumonia [None]
  - Immune thrombocytopenic purpura [None]
